FAERS Safety Report 9253187 (Version 2)
Quarter: 2013Q3

REPORT INFORMATION
  Report Type: Spontaneous
  Country: US (occurrence: US)
  Receive Date: 20130424
  Receipt Date: 20130916
  Transmission Date: 20140515
  Serious: Yes (Death, Hospitalization, Other)
  Sender: FDA-Public Use
  Company Number: US-009507513-1304USA013916

PATIENT
  Sex: Male
  Weight: 95.69 kg

DRUGS (9)
  1. JANUVIA [Suspect]
     Indication: TYPE 2 DIABETES MELLITUS
     Dosage: 100 MG, QD
     Route: 048
     Dates: start: 20070221, end: 200905
  2. METFORMIN [Concomitant]
     Indication: TYPE 2 DIABETES MELLITUS
     Dosage: 500 MG, BID
     Dates: end: 200906
  3. ACTOS [Concomitant]
     Indication: TYPE 2 DIABETES MELLITUS
     Dosage: 30 MG, UNK
     Dates: end: 200906
  4. LANTUS [Concomitant]
     Indication: TYPE 2 DIABETES MELLITUS
     Dosage: 20-40 UNITS, QH
  5. RELAFEN [Concomitant]
     Indication: SPONDYLITIS
     Dosage: 1000 MG, QAM
     Dates: start: 20060706, end: 20100728
  6. ALTACE [Concomitant]
     Indication: HYPERTENSION
     Dosage: 5 MG, QD
     Dates: start: 200304, end: 20100728
  7. RAMIPRIL [Concomitant]
     Indication: HYPERTENSION
     Dosage: 5 MG, QD
     Dates: start: 200304, end: 20100728
  8. LIPITOR [Concomitant]
     Indication: HYPERCHOLESTEROLAEMIA
     Dosage: 80 MG, QD
     Dates: start: 20081112, end: 20090603
  9. VYTORIN [Concomitant]
     Indication: HYPERCHOLESTEROLAEMIA
     Dosage: 10-80, QD
     Route: 048
     Dates: start: 20070221, end: 20081112

REACTIONS (47)
  - Pancreatic carcinoma [Fatal]
  - Pancreatic carcinoma [Unknown]
  - Pancreatic carcinoma [Unknown]
  - Metastases to liver [Unknown]
  - Syncope [Unknown]
  - Biopsy liver [Unknown]
  - Biopsy pancreas [Unknown]
  - Gastrooesophageal reflux disease [Unknown]
  - Ulcer [Unknown]
  - Nephrolithiasis [Unknown]
  - Metabolic syndrome [Unknown]
  - Bile duct obstruction [Unknown]
  - Biliary dilatation [Unknown]
  - Mesenteric venous occlusion [Unknown]
  - Hyperglycaemia [Unknown]
  - Liver disorder [Unknown]
  - Hyperbilirubinaemia [Unknown]
  - Biliary sphincterotomy [Unknown]
  - Bile duct stent insertion [Unknown]
  - Cholecystitis [Unknown]
  - Procedural complication [Unknown]
  - Anxiety [Unknown]
  - Temperature intolerance [Unknown]
  - Dysgeusia [Unknown]
  - General physical health deterioration [Unknown]
  - Early satiety [Unknown]
  - Benign tumour excision [Unknown]
  - Renal atrophy [Unknown]
  - Aortic aneurysm [Unknown]
  - Dysuria [Unknown]
  - Pollakiuria [Unknown]
  - Anaemia [Unknown]
  - Splenic calcification [Unknown]
  - Prostatomegaly [Unknown]
  - Atelectasis [Unknown]
  - Exostosis [Unknown]
  - Gastric disorder [Unknown]
  - Pericardial effusion [Unknown]
  - Pneumonia [Unknown]
  - Spinal disorder [Unknown]
  - Vascular calcification [Unknown]
  - Arterial thrombosis [Unknown]
  - Nocturia [Unknown]
  - Exposure to toxic agent [Unknown]
  - Exposure to radiation [Unknown]
  - Hypoglycaemia [Unknown]
  - Drug ineffective [Unknown]
